FAERS Safety Report 24005394 (Version 2)
Quarter: 2024Q2

REPORT INFORMATION
  Report Type: Spontaneous
  Country: US (occurrence: US)
  Receive Date: 20240624
  Receipt Date: 20240625
  Transmission Date: 20240715
  Serious: Yes (Other)
  Sender: FDA-Public Use
  Company Number: US-PFIZER INC-202400197718

PATIENT
  Age: 86 Year
  Sex: Male

DRUGS (9)
  1. VYNDAMAX [Suspect]
     Active Substance: TAFAMIDIS
     Dosage: 61 MG
  2. EZETIMIBE [Concomitant]
     Active Substance: EZETIMIBE
     Dosage: UNK
  3. FERROUS SULFATE [Concomitant]
     Active Substance: FERROUS SULFATE
     Dosage: UNK
  4. FLUTICASONE [Concomitant]
     Active Substance: FLUTICASONE
     Dosage: UNK
  5. LEVOTHYROXINE [Concomitant]
     Active Substance: LEVOTHYROXINE\LEVOTHYROXINE SODIUM
     Dosage: UNK
  6. LOSARTAN [Concomitant]
     Active Substance: LOSARTAN
     Dosage: UNK
  7. METOPROLOL TARTRATE [Concomitant]
     Active Substance: METOPROLOL TARTRATE
     Dosage: UNK
  8. RIVAROXABAN [Concomitant]
     Active Substance: RIVAROXABAN
     Dosage: UNK
  9. ROSUVASTATIN [Concomitant]
     Active Substance: ROSUVASTATIN
     Dosage: UNK

REACTIONS (4)
  - Blindness [Unknown]
  - Diplopia [Unknown]
  - Hypotension [Unknown]
  - Condition aggravated [Unknown]
